FAERS Safety Report 23215332 (Version 1)
Quarter: 2023Q4

REPORT INFORMATION
  Report Type: Spontaneous
  Country: GB (occurrence: GB)
  Receive Date: 20231122
  Receipt Date: 20231122
  Transmission Date: 20240109
  Serious: Yes (Hospitalization, Other)
  Sender: FDA-Public Use
  Company Number: None

PATIENT
  Sex: Female

DRUGS (1)
  1. TRIMETHOPRIM [Suspect]
     Active Substance: TRIMETHOPRIM
     Indication: Product used for unknown indication
     Route: 065

REACTIONS (7)
  - Loss of consciousness [Recovered/Resolved]
  - Diarrhoea [Unknown]
  - Somnolence [Unknown]
  - Illness [Unknown]
  - Blood pressure abnormal [Unknown]
  - Body temperature abnormal [Unknown]
  - Product prescribing error [Unknown]
